FAERS Safety Report 8234848-2 (Version None)
Quarter: 2012Q1

REPORT INFORMATION
  Report Type: 
  Country: None (occurrence: None)
  Receive Date: 20120326
  Receipt Date: 20120322
  Transmission Date: 20120608
  Serious: No
  Sender: FDA-Public Use
  Company Number: US-PFIZER INC-2012075802

PATIENT
  Sex: Female
  Weight: 54.422 kg

DRUGS (7)
  1. GLIPIZIDE [Concomitant]
     Indication: DIABETES MELLITUS
     Dosage: UNK, DAILY
  2. ACETYLSALICYLIC ACID [Concomitant]
     Dosage: UNK, DAILY
  3. SIMVASTATIN [Concomitant]
     Indication: BLOOD CHOLESTEROL ABNORMAL
     Dosage: UNK, DAILY
  4. CHANTIX [Suspect]
     Indication: SMOKING CESSATION THERAPY
     Dosage: 0.5 MG, DAILY
     Route: 048
     Dates: start: 20120201
  5. CHANTIX [Suspect]
     Dosage: 1 MG, 2X/DAY
     Route: 048
  6. LOSARTAN [Concomitant]
     Indication: CARDIAC DISORDER
     Dosage: UNK, DAILY
  7. LOSARTAN [Concomitant]
     Indication: BLOOD PRESSURE ABNORMAL

REACTIONS (3)
  - VOMITING [None]
  - NAUSEA [None]
  - NERVOUSNESS [None]
